FAERS Safety Report 16909099 (Version 2)
Quarter: 2019Q4

REPORT INFORMATION
  Report Type: Spontaneous
  Country: US (occurrence: US)
  Receive Date: 20191011
  Receipt Date: 20191202
  Transmission Date: 20200122
  Serious: No
  Sender: FDA-Public Use
  Company Number: US-BAYER-2019-179794

PATIENT
  Age: 24 Year
  Sex: Female
  Weight: 62.14 kg

DRUGS (5)
  1. MIRENA [Suspect]
     Active Substance: LEVONORGESTREL
     Indication: MENORRHAGIA
     Dosage: 20 MCG/24HR, CONT
     Route: 015
     Dates: start: 20190812
  2. MIRENA [Suspect]
     Active Substance: LEVONORGESTREL
     Indication: CONTRACEPTION
  3. PARAGARD T 380A [Concomitant]
     Active Substance: COPPER
     Dosage: 1 DF, CONT
     Route: 048
     Dates: start: 20190812
  4. MIRENA [Suspect]
     Active Substance: LEVONORGESTREL
     Indication: CONTRACEPTION
  5. MIRENA [Suspect]
     Active Substance: LEVONORGESTREL
     Indication: MENORRHAGIA

REACTIONS (4)
  - Dyspareunia [None]
  - Abdominal pain lower [None]
  - Device expulsion [None]
  - Presyncope [None]

NARRATIVE: CASE EVENT DATE: 20190927
